FAERS Safety Report 12816555 (Version 1)
Quarter: 2016Q4

REPORT INFORMATION
  Report Type: Spontaneous
  Country: US (occurrence: US)
  Receive Date: 20161005
  Receipt Date: 20161005
  Transmission Date: 20170207
  Serious: No
  Sender: FDA-Public Use
  Company Number: None

PATIENT
  Age: 56 Year
  Sex: Female

DRUGS (1)
  1. VANCOMYCIN [Suspect]
     Active Substance: VANCOMYCIN
     Indication: PREOPERATIVE CARE
     Route: 042

REACTIONS (6)
  - Flushing [None]
  - Erythema [None]
  - Tongue disorder [None]
  - Chest discomfort [None]
  - Rash macular [None]
  - Throat tightness [None]

NARRATIVE: CASE EVENT DATE: 20161003
